FAERS Safety Report 6584932-4 (Version None)
Quarter: 2010Q1

REPORT INFORMATION
  Report Type: 
  Country: None (occurrence: None)
  Receive Date: 20100217
  Receipt Date: 20100205
  Transmission Date: 20100710
  Serious: Yes (Other)
  Sender: FDA-Public Use
  Company Number: GB-BAYER-201015413GPV

PATIENT
  Age: 65 Year
  Sex: Male

DRUGS (3)
  1. CAMPATH [Suspect]
     Indication: CHRONIC LYMPHOCYTIC LEUKAEMIA RECURRENT
  2. METHYLPREDNISOLONE [Suspect]
     Indication: ANAEMIA HAEMOLYTIC AUTOIMMUNE
  3. CYCLOSPORINE [Suspect]
     Indication: ANAEMIA HAEMOLYTIC AUTOIMMUNE

REACTIONS (8)
  - ASPERGILLOSIS [None]
  - CEREBRAL ASPERGILLOSIS [None]
  - EYE PAIN [None]
  - THROMBOCYTOPENIA [None]
  - UVEITIS [None]
  - VISUAL ACUITY REDUCED [None]
  - VITREOUS ABSCESS [None]
  - VITREOUS HAEMORRHAGE [None]
